FAERS Safety Report 6213768-9 (Version None)
Quarter: 2009Q2

REPORT INFORMATION
  Report Type: 
  Country: None (occurrence: None)
  Receive Date: 20090602
  Receipt Date: 20090520
  Transmission Date: 20091009
  Serious: Yes (Hospitalization)
  Sender: FDA-Public Use
  Company Number: 235701K09USA

PATIENT
  Age: 59 Year
  Sex: Male
  Weight: 118 kg

DRUGS (4)
  1. REBIF [Suspect]
     Indication: MULTIPLE SCLEROSIS
     Dosage: 44 MCG, 3 IN 1 WEEKS, SUBCUTANEOUS, 22 MCG, 3 IN 1 WEEKS
     Route: 058
     Dates: start: 20060426, end: 20080101
  2. REBIF [Suspect]
     Indication: MULTIPLE SCLEROSIS
     Dosage: 44 MCG, 3 IN 1 WEEKS, SUBCUTANEOUS, 22 MCG, 3 IN 1 WEEKS
     Route: 058
     Dates: start: 20080101
  3. ALEVE [Concomitant]
  4. TYLENOL (CAPLET) [Concomitant]

REACTIONS (4)
  - HEPATIC STEATOSIS [None]
  - HYPERTENSION [None]
  - ORAL PAIN [None]
  - SALIVARY GLAND NEOPLASM [None]
